FAERS Safety Report 11531057 (Version 1)
Quarter: 2015Q3

REPORT INFORMATION
  Report Type: Spontaneous
  Country: US (occurrence: US)
  Receive Date: 20150903
  Receipt Date: 20150903
  Transmission Date: 20151125
  Serious: No
  Sender: FDA-Public Use
  Company Number: US-ELI_LILLY_AND_COMPANY-US201210001789

PATIENT
  Sex: Female
  Weight: 132.8 kg

DRUGS (4)
  1. CYMBALTA [Suspect]
     Active Substance: DULOXETINE HYDROCHLORIDE
     Indication: SCIATICA
     Dosage: 60 MG, QD
     Route: 048
     Dates: start: 20120924, end: 20121003
  2. FLEXERIL [Concomitant]
     Active Substance: CYCLOBENZAPRINE HYDROCHLORIDE
     Dosage: 10 MG, TID
     Route: 051
  3. NEURONTIN [Concomitant]
     Active Substance: GABAPENTIN
     Dosage: 300 MG, TID
  4. IBUPROFEN. [Concomitant]
     Active Substance: IBUPROFEN
     Dosage: 600 MG, FOUR TIMES A DAY
     Route: 051

REACTIONS (4)
  - Tongue exfoliation [Recovered/Resolved]
  - Tongue coated [Recovered/Resolved]
  - Glossitis [Recovered/Resolved]
  - Off label use [Unknown]
